FAERS Safety Report 5119175-4 (Version None)
Quarter: 2006Q3

REPORT INFORMATION
  Report Type: 
  Country: None (occurrence: None)
  Receive Date: 20060929
  Receipt Date: 20060929
  Transmission Date: 20061208
  Serious: Yes (Hospitalization)
  Sender: FDA-Public Use
  Company Number: None

PATIENT
  Age: 68 Year
  Sex: Male
  Weight: 79.8331 kg

DRUGS (1)
  1. CYPHER STENT [Suspect]

REACTIONS (4)
  - CHEST PAIN [None]
  - COAGULATION TIME PROLONGED [None]
  - ELECTROCARDIOGRAM ST SEGMENT ELEVATION [None]
  - STENT OCCLUSION [None]
